FAERS Safety Report 15767070 (Version 4)
Quarter: 2019Q1

REPORT INFORMATION
  Report Type: Spontaneous
  Country: JP (occurrence: JP)
  Receive Date: 20181227
  Receipt Date: 20190326
  Transmission Date: 20190417
  Serious: Yes (Hospitalization)
  Sender: FDA-Public Use
  Company Number: JP-ELI_LILLY_AND_COMPANY-JP201812010852

PATIENT
  Sex: Male
  Weight: 66 kg

DRUGS (5)
  1. CYRAMZA [Suspect]
     Active Substance: RAMUCIRUMAB
     Indication: ADENOCARCINOMA GASTRIC
     Dosage: 400 MG, UNK
     Route: 041
     Dates: start: 20181122, end: 20181122
  2. PACLITAXEL. [Suspect]
     Active Substance: PACLITAXEL
     Indication: ADENOCARCINOMA GASTRIC
     Dosage: 100 MG, UNK
     Route: 041
     Dates: start: 20181122
  3. RANITIDINE. [Concomitant]
     Active Substance: RANITIDINE
     Indication: PROPHYLAXIS
     Dosage: 50 MG, DAILY
     Route: 041
     Dates: start: 20181122, end: 20181207
  4. DEXAMETHASONE. [Concomitant]
     Active Substance: DEXAMETHASONE
     Indication: PROPHYLAXIS
     Dosage: 6.6 MG, DAILY
     Route: 041
     Dates: start: 20181122, end: 20181207
  5. RESTAMIN KOWA [Concomitant]
     Indication: PROPHYLAXIS
     Dosage: 50 MG, DAILY
     Route: 048
     Dates: start: 20181122, end: 20181207

REACTIONS (1)
  - Nephrotic syndrome [Recovering/Resolving]

NARRATIVE: CASE EVENT DATE: 20181207
